FAERS Safety Report 8300243-0 (Version None)
Quarter: 2012Q2

REPORT INFORMATION
  Report Type: 
  Country: None (occurrence: None)
  Receive Date: 20120417
  Receipt Date: 20120402
  Transmission Date: 20120825
  Serious: Yes (Life-Threatening, Hospitalization)
  Sender: FDA-Public Use
  Company Number: CRC-12-125

PATIENT
  Age: 51 Year
  Sex: Female

DRUGS (9)
  1. HYDROXYZINE [Concomitant]
  2. BACLOFEN [Suspect]
     Dosage: OVERDOSE;ONCE; ORAL
     Route: 048
  3. PHENYTOIN [Concomitant]
  4. CLORAZEPATE DIPOTASSIUM [Concomitant]
  5. PAROXETINE [Concomitant]
  6. PHENOBARBITAL TAB [Concomitant]
  7. DIGOXIN [Concomitant]
  8. WARFARIN SODIUM [Concomitant]
  9. BACLOFEN [Concomitant]

REACTIONS (8)
  - BLOOD PRESSURE SYSTOLIC DECREASED [None]
  - RESPIRATORY RATE DECREASED [None]
  - BODY TEMPERATURE DECREASED [None]
  - COMA [None]
  - SUICIDE ATTEMPT [None]
  - HYPOXIC-ISCHAEMIC ENCEPHALOPATHY [None]
  - UNRESPONSIVE TO STIMULI [None]
  - OVERDOSE [None]
